FAERS Safety Report 8452275-X (Version None)
Quarter: 2012Q2

REPORT INFORMATION
  Report Type: 
  Country: None (occurrence: None)
  Receive Date: 20120620
  Receipt Date: 20120608
  Transmission Date: 20120825
  Serious: Yes (Other)
  Sender: FDA-Public Use
  Company Number: US-ELI_LILLY_AND_COMPANY-US201206003773

PATIENT
  Sex: Male

DRUGS (1)
  1. FORTEO [Suspect]
     Dosage: 20 UG, QD
     Route: 058
     Dates: start: 20110701

REACTIONS (5)
  - RADIAL NERVE PALSY [None]
  - FALL [None]
  - UPPER LIMB FRACTURE [None]
  - CONCUSSION [None]
  - LACERATION [None]
